FAERS Safety Report 22022806 (Version 1)
Quarter: 2023Q1

REPORT INFORMATION
  Report Type: Spontaneous
  Country: DE (occurrence: DE)
  Receive Date: 20230222
  Receipt Date: 20230222
  Transmission Date: 20230417
  Serious: Yes (Hospitalization)
  Sender: FDA-Public Use
  Company Number: DE-JNJFOC-20230122443

PATIENT
  Sex: Female

DRUGS (11)
  1. DEXAMETHASONE [Suspect]
     Active Substance: DEXAMETHASONE
     Indication: Plasma cell myeloma
     Dosage: LAST DOSE 05/JAN/2023 AND NEXT DOSE 04/FEB/2023
     Route: 042
     Dates: start: 20221229
  2. DEXAMETHASONE [Suspect]
     Active Substance: DEXAMETHASONE
     Dosage: LAST DOSE 23/DEC/2022 AND NEXT DOSE 22/JAN/2023
     Route: 042
     Dates: start: 20221130
  3. LENALIDOMIDE [Suspect]
     Active Substance: LENALIDOMIDE
     Indication: Plasma cell myeloma
     Dosage: LAST DOSE 27/DEC/2022 AND NEXT DOSE 26/JAN/2023
     Route: 048
     Dates: start: 20221130
  4. THALIDOMIDE [Suspect]
     Active Substance: THALIDOMIDE
     Indication: Plasma cell myeloma
     Dosage: LAST DOSE 08/JAN/2023 AND NEXT DOSE 07/FEB/2023
     Route: 048
     Dates: start: 20221130
  5. DARATUMUMAB [Suspect]
     Active Substance: DARATUMUMAB
     Indication: Plasma cell myeloma
     Dosage: LAST DOSE 23/JAN/2023 AND NEXT DOSE 22/FEB/2023
     Route: 042
     Dates: start: 20221207
  6. DARATUMUMAB [Suspect]
     Active Substance: DARATUMUMAB
     Dosage: LAST DOSE 05/JAN/2023 AND NEXT DOSE 04/FEB/2023
     Route: 040
     Dates: start: 20221229
  7. BORTEZOMIB [Suspect]
     Active Substance: BORTEZOMIB
     Indication: Plasma cell myeloma
     Dosage: LAST DOSE 05/JAN/2023  AND NEXT DOSE 04/FEB/2023
     Route: 058
     Dates: start: 20221229
  8. BORTEZOMIB [Suspect]
     Active Substance: BORTEZOMIB
     Dosage: LAST DOSE 12/DEC/2022 AND NEXT DOSE 11/JAN/2023
     Route: 058
     Dates: start: 20221130
  9. BORTEZOMIB [Suspect]
     Active Substance: BORTEZOMIB
     Dosage: LAST DOSE: 2-JAN-2023
     Route: 058
     Dates: start: 20221130
  10. DEXAMETHASONE [Suspect]
     Active Substance: DEXAMETHASONE
     Indication: Plasma cell myeloma
     Dosage: LAST DOSE 24/DEC/2022 AND NEXT DOSE 23/JAN/2023
     Route: 048
     Dates: start: 20221208
  11. DEXAMETHASONE [Suspect]
     Active Substance: DEXAMETHASONE
     Dosage: LAST DOSE 06/JAN/2023? AND NEXT DOSE 05/FEB/2023
     Route: 048
     Dates: start: 20221230

REACTIONS (1)
  - Dermatitis [Recovered/Resolved]

NARRATIVE: CASE EVENT DATE: 20230109
